FAERS Safety Report 5790151-1 (Version None)
Quarter: 2008Q2

REPORT INFORMATION
  Report Type: 
  Country: None (occurrence: None)
  Receive Date: 20080626
  Receipt Date: 20080418
  Transmission Date: 20081010
  Serious: No
  Sender: FDA-Public Use
  Company Number: A0700857A

PATIENT
  Age: 59 Year
  Sex: Female

DRUGS (1)
  1. ALLI [Suspect]
     Dates: start: 20071113, end: 20071127

REACTIONS (8)
  - DIARRHOEA [None]
  - DRUG INEFFECTIVE [None]
  - FAECES DISCOLOURED [None]
  - HYPERSENSITIVITY [None]
  - NAUSEA [None]
  - NERVOUSNESS [None]
  - RASH GENERALISED [None]
  - RECTAL DISCHARGE [None]
